FAERS Safety Report 4590703-0 (Version None)
Quarter: 2005Q1

REPORT INFORMATION
  Report Type: 
  Country: None (occurrence: None)
  Receive Date: 20050224
  Receipt Date: 20050125
  Transmission Date: 20050727
  Serious: Yes (Life-Threatening)
  Sender: FDA-Public Use
  Company Number: JP-MERCK-0501USA04330

PATIENT
  Age: 71 Year
  Sex: Male
  Weight: 63 kg

DRUGS (6)
  1. FOSAMAX [Suspect]
     Route: 048
     Dates: end: 20050126
  2. VOLTAREN [Suspect]
     Route: 048
     Dates: end: 20050126
  3. OPALMON [Concomitant]
     Route: 048
  4. TERNELIN [Concomitant]
     Route: 048
  5. GASTER [Concomitant]
     Route: 065
  6. VALPROATE SODIUM [Concomitant]
     Route: 048

REACTIONS (3)
  - GASTRITIS HAEMORRHAGIC [None]
  - IRON DEFICIENCY ANAEMIA [None]
  - RENAL IMPAIRMENT [None]
